FAERS Safety Report 5731199-2 (Version None)
Quarter: 2008Q2

REPORT INFORMATION
  Report Type: 
  Country: None (occurrence: None)
  Receive Date: 20080507
  Receipt Date: 20080417
  Transmission Date: 20081010
  Serious: No
  Sender: FDA-Public Use
  Company Number: US-BOEHRINGER INGELHEIM GMBH, GERMANY-2008-BP-06076BP

PATIENT
  Age: 58 Year
  Sex: Male

DRUGS (1)
  1. MIRAPEX [Suspect]

REACTIONS (2)
  - EXCESSIVE SEXUAL FANTASIES [None]
  - IMPULSE-CONTROL DISORDER [None]
